FAERS Safety Report 9312902 (Version 3)
Quarter: 2013Q3

REPORT INFORMATION
  Report Type: Spontaneous
  Country: DE (occurrence: DE)
  Receive Date: 20130528
  Receipt Date: 20130722
  Transmission Date: 20140515
  Serious: Yes (Hospitalization)
  Sender: FDA-Public Use
  Company Number: DE-ALEXION-A201301166

PATIENT
  Age: 76 Year
  Sex: Female

DRUGS (1)
  1. SOLIRIS 300MG [Suspect]
     Indication: PAROXYSMAL NOCTURNAL HAEMOGLOBINURIA
     Dosage: 600 MG, Q2W
     Route: 042
     Dates: start: 20080204

REACTIONS (1)
  - Malignant peritoneal neoplasm [Not Recovered/Not Resolved]
